FAERS Safety Report 12815889 (Version 1)
Quarter: 2016Q4

REPORT INFORMATION
  Report Type: Report from Study
  Country: US (occurrence: US)
  Receive Date: 20161006
  Receipt Date: 20161006
  Transmission Date: 20170207
  Serious: Yes (Other)
  Sender: FDA-Public Use
  Company Number: US-AMGEN-USASL2016070980

PATIENT
  Age: 68 Year
  Sex: Female
  Weight: 56.24 kg

DRUGS (14)
  1. PROLIA [Suspect]
     Active Substance: DENOSUMAB
     Indication: OSTEOPOROSIS
     Dosage: 60 MG/ML, Q6MO
     Route: 058
  2. DILTIAZEM HCL [Concomitant]
     Active Substance: DILTIAZEM HYDROCHLORIDE
     Indication: HYPERTENSION
     Dosage: 120 MG, QD
     Dates: start: 20160427
  3. REPATHA [Suspect]
     Active Substance: EVOLOCUMAB
     Indication: HYPERLIPIDAEMIA
     Dosage: 140 MG, Q2WK
     Route: 058
     Dates: start: 20151125, end: 20160527
  4. IPRATROPIUM BROMIDE. [Concomitant]
     Active Substance: IPRATROPIUM BROMIDE
     Dosage: 0.2 % (4 TIMES/DAY), UNK
     Dates: start: 20160601
  5. CIPROFLOXACIN HCL [Concomitant]
     Active Substance: CIPROFLOXACIN HYDROCHLORIDE
     Dosage: 500 MG, BID
     Route: 048
     Dates: start: 20160601
  6. NITROSTAT [Concomitant]
     Active Substance: NITROGLYCERIN
     Indication: CHEST PAIN
     Dosage: 0.4 MG, AS NECESSARY
     Route: 060
     Dates: start: 20140602
  7. CALCIUM [Concomitant]
     Active Substance: CALCIUM
     Dosage: 650 MG, QD
  8. NYSTATIN AND TRIAMCINOLONE [Concomitant]
     Active Substance: NYSTATIN\TRIAMCINOLONE ACETONIDE
     Dosage: (100000-0.1 UNIT/GM-%)
     Dates: start: 20150313
  9. SYMBICORT [Concomitant]
     Active Substance: BUDESONIDE\FORMOTEROL FUMARATE DIHYDRATE
     Dosage: UNK
     Dates: start: 20140121
  10. CHOLECALCIFEROL [Concomitant]
     Active Substance: CHOLECALCIFEROL
     Dosage: UNK UNK, 2 TIMES/WK
     Route: 048
     Dates: start: 20130327
  11. TRIAMCINOLONE ACETONIDE. [Concomitant]
     Active Substance: TRIAMCINOLONE ACETONIDE
     Indication: LICHEN SCLEROSUS
     Dosage: 0.1 %, UNK
     Dates: start: 20160405
  12. LEVOXYL [Concomitant]
     Active Substance: LEVOTHYROXINE SODIUM
     Dosage: 112 MUG, QD
  13. VITAMIN B COMPLEX [Concomitant]
     Active Substance: CYANOCOBALAMIN\DEXPANTHENOL\NIACINAMIDE\PYRIDOXINE HYDROCHLORIDE\RIBOFLAVIN 5^-PHOSPHATE SODIUM\THIAMINE HYDROCHLORIDE\VITAMIN B COMPLEX
  14. SYMBICORT [Concomitant]
     Active Substance: BUDESONIDE\FORMOTEROL FUMARATE DIHYDRATE
     Indication: ASTHMA
     Dosage: (4.5 MUG/ACT), BID
     Route: 045
     Dates: start: 20140121

REACTIONS (17)
  - Astigmatism [Unknown]
  - Bone pain [Unknown]
  - Asthma [Recovering/Resolving]
  - Abdominal pain [Unknown]
  - Hypertension [Unknown]
  - Visual impairment [Unknown]
  - Spinal osteoarthritis [Unknown]
  - Pneumonia [Recovering/Resolving]
  - Pharyngitis [Unknown]
  - Presbyopia [Unknown]
  - Pain [Unknown]
  - Nasal congestion [Recovering/Resolving]
  - Muscle strain [Unknown]
  - Chest discomfort [Unknown]
  - Viral infection [Unknown]
  - Hypermetropia [Unknown]
  - Eczema [Unknown]

NARRATIVE: CASE EVENT DATE: 20160515
